FAERS Safety Report 24027054 (Version 1)
Quarter: 2024Q2

REPORT INFORMATION
  Report Type: Spontaneous
  Country: AU (occurrence: AU)
  Receive Date: 20240628
  Receipt Date: 20240628
  Transmission Date: 20240716
  Serious: Yes (Other)
  Sender: FDA-Public Use
  Company Number: AU-CHEPLA-2024007974

PATIENT
  Age: 19 Year
  Sex: Male

DRUGS (9)
  1. OLANZAPINE [Suspect]
     Active Substance: OLANZAPINE
     Indication: Product used for unknown indication
  2. CLOZAPINE [Suspect]
     Active Substance: CLOZAPINE
     Indication: Product used for unknown indication
  3. VALPROATE SODIUM [Suspect]
     Active Substance: VALPROATE SODIUM
     Indication: Product used for unknown indication
  4. AMISULPRIDE [Concomitant]
     Active Substance: AMISULPRIDE
  5. ARIPIPRAZOLE [Concomitant]
     Active Substance: ARIPIPRAZOLE
  6. ASENAPINE [Concomitant]
     Active Substance: ASENAPINE
  7. PALIPERIDONE [Concomitant]
     Active Substance: PALIPERIDONE
  8. RISPERIDONE [Concomitant]
     Active Substance: RISPERIDONE
  9. ZUCLOPENTHIXOL [Concomitant]
     Active Substance: ZUCLOPENTHIXOL

REACTIONS (5)
  - Myocarditis [Unknown]
  - Neutropenia [Unknown]
  - COVID-19 [Unknown]
  - Sinus tachycardia [Unknown]
  - Off label use [Unknown]
